FAERS Safety Report 10228425 (Version 1)
Quarter: 2014Q2

REPORT INFORMATION
  Report Type: Spontaneous
  Country: US (occurrence: None)
  Receive Date: 20140505
  Receipt Date: 20140505
  Transmission Date: 20141212
  Serious: Yes (Other)
  Sender: FDA-Public Use
  Company Number: DAV-AE-NAP-13-04

PATIENT
  Age: 61 Year
  Sex: Male

DRUGS (3)
  1. NAPROXEN [Suspect]
  2. IBUPROFEN [Concomitant]
  3. PANTOPRAZOLE [Concomitant]

REACTIONS (1)
  - Large intestinal ulcer [None]
